FAERS Safety Report 10102936 (Version 2)
Quarter: 2014Q2

REPORT INFORMATION
  Report Type: Spontaneous
  Country: BG (occurrence: BG)
  Receive Date: 20140424
  Receipt Date: 20140424
  Transmission Date: 20141212
  Serious: Yes (Other)
  Sender: FDA-Public Use
  Company Number: PHHY2014BG013480

PATIENT
  Age: 33 Year
  Sex: Female

DRUGS (2)
  1. AMOKSIKLAV [Suspect]
     Indication: BRONCHITIS
     Dosage: 2000 MG, UNK
     Route: 048
  2. ACC [Concomitant]
     Dosage: 600 MG, UNK

REACTIONS (2)
  - Premature delivery [Unknown]
  - Maternal exposure during pregnancy [Unknown]
